FAERS Safety Report 20554916 (Version 1)
Quarter: 2022Q1

REPORT INFORMATION
  Report Type: Spontaneous
  Country: NL (occurrence: NL)
  Receive Date: 20220304
  Receipt Date: 20220304
  Transmission Date: 20220423
  Serious: Yes (Other)
  Sender: FDA-Public Use
  Company Number: None

PATIENT
  Sex: Female
  Weight: 77 kg

DRUGS (2)
  1. QUETIAPINE [Suspect]
     Active Substance: QUETIAPINE
     Indication: Sleep disorder
     Dosage: 25 MILLIGRAM, QD (1X1 BEFORE THE NIGHT)
     Dates: start: 20220111, end: 20220126
  2. LITHIUM [Concomitant]
     Active Substance: LITHIUM
     Dosage: 1600 MILLIGRAM

REACTIONS (1)
  - Hallucination, visual [Recovered/Resolved]
